FAERS Safety Report 7618404-2 (Version None)
Quarter: 2011Q3

REPORT INFORMATION
  Report Type: 
  Country: None (occurrence: None)
  Receive Date: 20110718
  Receipt Date: 20110708
  Transmission Date: 20111222
  Serious: Yes (Death)
  Sender: FDA-Public Use
  Company Number: PHHY2011US58669

PATIENT
  Sex: Female

DRUGS (2)
  1. ZOMETA [Suspect]
     Indication: METASTASES TO BONE
     Dosage: 0.2 MG/ML, UNK
  2. ZOMETA [Suspect]
     Dosage: 4MG/5ML
     Dates: end: 20101201

REACTIONS (2)
  - NEOPLASM PROGRESSION [None]
  - NEOPLASM MALIGNANT [None]
